FAERS Safety Report 4954623-1 (Version None)
Quarter: 2006Q1

REPORT INFORMATION
  Report Type: 
  Country: None (occurrence: None)
  Receive Date: 20060327
  Receipt Date: 20060220
  Transmission Date: 20060701
  Serious: Yes (Hospitalization)
  Sender: FDA-Public Use
  Company Number: FR-ROCHE-437461

PATIENT
  Age: 4 Year
  Sex: Female
  Weight: 15 kg

DRUGS (5)
  1. RIVOTRIL [Suspect]
     Indication: EPILEPSY
     Dosage: 10 DROPS IN THE MORNING, 8 DROPS AT LUNCHTIME AND 10 DROPS IN THE EVENING.
     Route: 048
     Dates: end: 20060220
  2. RIVOTRIL [Suspect]
     Dosage: DOSAGE DECREASED IN RESPONSE TO THE EVENTS.
     Route: 048
     Dates: start: 20060220
  3. RIVOTRIL [Suspect]
     Route: 048
  4. EPITOMAX [Concomitant]
     Indication: EPILEPSY
  5. LAMICTAL [Concomitant]
     Indication: EPILEPSY

REACTIONS (7)
  - BACTERIA URINE IDENTIFIED [None]
  - COORDINATION ABNORMAL [None]
  - HAEMOLYTIC URAEMIC SYNDROME [None]
  - HYPOTENSION [None]
  - LETHARGY [None]
  - PNEUMOCOCCAL INFECTION [None]
  - SOMNOLENCE [None]
